FAERS Safety Report 7767252-1 (Version None)
Quarter: 2011Q3

REPORT INFORMATION
  Report Type: 
  Country: None (occurrence: None)
  Receive Date: 20110922
  Receipt Date: 20110114
  Transmission Date: 20111222
  Serious: No
  Sender: FDA-Public Use
  Company Number: US-ASTRAZENECA-2010SE61039

PATIENT
  Age: 49 Year
  Sex: Female
  Weight: 74.8 kg

DRUGS (12)
  1. SEROQUEL [Suspect]
     Route: 048
     Dates: start: 20101001, end: 20101201
  2. LISINOPRIL [Concomitant]
  3. VITAMIN TAB [Concomitant]
  4. SEROQUEL [Suspect]
     Route: 048
     Dates: start: 20110101
  5. SEROQUEL [Suspect]
     Route: 048
     Dates: start: 20110101
  6. CYMBALTA [Concomitant]
  7. SEROQUEL [Suspect]
     Indication: SLEEP DISORDER
     Route: 048
     Dates: start: 20101001, end: 20101001
  8. CARDIZEM CD [Concomitant]
  9. SEROQUEL [Suspect]
     Indication: BIPOLAR DISORDER
     Route: 048
     Dates: start: 20101001, end: 20101001
  10. SEROQUEL [Suspect]
     Route: 048
     Dates: start: 20101001, end: 20101201
  11. AMBIEN [Concomitant]
  12. TOPAMAX [Concomitant]

REACTIONS (11)
  - NERVOUSNESS [None]
  - FATIGUE [None]
  - DRUG DOSE OMISSION [None]
  - MENTAL DISORDER [None]
  - HUNGER [None]
  - ANXIETY [None]
  - INAPPROPRIATE SCHEDULE OF DRUG ADMINISTRATION [None]
  - SPEECH DISORDER [None]
  - VISUAL IMPAIRMENT [None]
  - INSOMNIA [None]
  - WEIGHT INCREASED [None]
